FAERS Safety Report 8028225-7 (Version None)
Quarter: 2012Q1

REPORT INFORMATION
  Report Type: 
  Country: None (occurrence: None)
  Receive Date: 20120106
  Receipt Date: 20111227
  Transmission Date: 20120608
  Serious: Yes (Disabling, Other)
  Sender: FDA-Public Use
  Company Number: FR-PFIZER INC-2011266152

PATIENT
  Age: 94 Year
  Sex: Female

DRUGS (4)
  1. ZOLPIDEM [Concomitant]
  2. RABEPRAZOLE SODIUM [Concomitant]
  3. ASPIRIN [Concomitant]
  4. AMIODARONE HCL [Suspect]
     Indication: TACHYARRHYTHMIA
     Dosage: 200 MG
     Route: 048
     Dates: start: 20110615, end: 20111014

REACTIONS (3)
  - RENAL FAILURE [None]
  - HYPERTHYROIDISM [None]
  - COGNITIVE DISORDER [None]
